FAERS Safety Report 6248793-5 (Version None)
Quarter: 2009Q2

REPORT INFORMATION
  Report Type: 
  Country: None (occurrence: None)
  Receive Date: 20090629
  Receipt Date: 20090615
  Transmission Date: 20091009
  Serious: Yes (Life-Threatening, Hospitalization)
  Sender: FDA-Public Use
  Company Number: NL-ROCHE-638447

PATIENT
  Sex: Male

DRUGS (13)
  1. CAPECITABINE [Suspect]
     Indication: COLORECTAL CANCER
     Route: 048
     Dates: start: 20090305
  2. BEVACIZUMAB [Suspect]
     Indication: COLORECTAL CANCER
     Route: 042
     Dates: start: 20090305
  3. BEVACIZUMAB [Suspect]
     Route: 042
  4. OXALIPLATIN [Suspect]
     Indication: COLORECTAL CANCER
     Route: 042
     Dates: start: 20090305
  5. PANTOZOL [Concomitant]
  6. DICLOFENAC [Concomitant]
     Dosage: DOSE: 2X200 MG
  7. PRIMPERAN [Concomitant]
  8. LORAZEPAM [Concomitant]
     Dosage: DOSE REPORTED AS: 1 MG DD.
  9. NEXIUM [Concomitant]
     Dosage: DOSE REPORTED AS: 40 MG DD.
  10. DURAGESIC-100 [Concomitant]
     Dosage: DOSE REPORTED AS:^12UG/UUR^ EVERY 3 DAYS.
  11. DURAGESIC-100 [Concomitant]
     Dosage: DOSE REPORTED AS: 25 UG.
  12. METOCLOPRAMIDE [Concomitant]
     Dosage: DOSE REPORTED AS:10 MG PRN.
  13. DEXAMETHASONE [Concomitant]
     Dosage: DOSE REPORTED AS: 2 DD 2 1.5 MG.

REACTIONS (2)
  - ASTHENIA [None]
  - TUMOUR LOCAL INVASION [None]
